FAERS Safety Report 16404536 (Version 2)
Quarter: 2019Q3

REPORT INFORMATION
  Report Type: Spontaneous
  Country: US (occurrence: US)
  Receive Date: 20190607
  Receipt Date: 20190823
  Transmission Date: 20191004
  Serious: No
  Sender: FDA-Public Use
  Company Number: US-PFIZER INC-2019107219

PATIENT
  Age: 77 Year
  Sex: Female
  Weight: 50 kg

DRUGS (2)
  1. LYRICA [Suspect]
     Active Substance: PREGABALIN
     Indication: PAIN
  2. LYRICA [Suspect]
     Active Substance: PREGABALIN
     Indication: OSTEOARTHRITIS
     Dosage: 25 MG, 3X/DAY
     Route: 048
     Dates: end: 2019

REACTIONS (10)
  - Gait disturbance [Not Recovered/Not Resolved]
  - Loss of personal independence in daily activities [Unknown]
  - Pain in extremity [Unknown]
  - Insomnia [Unknown]
  - Pain [Not Recovered/Not Resolved]
  - Arthritis [Unknown]
  - Visual impairment [Unknown]
  - Hypoacusis [Unknown]
  - Thinking abnormal [Unknown]
  - Skin ulcer [Unknown]

NARRATIVE: CASE EVENT DATE: 201802
